FAERS Safety Report 7114248-9 (Version None)
Quarter: 2010Q4

REPORT INFORMATION
  Report Type: 
  Country: None (occurrence: None)
  Receive Date: 20101119
  Receipt Date: 20101105
  Transmission Date: 20110411
  Serious: Yes (Other)
  Sender: FDA-Public Use
  Company Number: JP-ROCHE-731410

PATIENT
  Sex: Female
  Weight: 54 kg

DRUGS (16)
  1. ACTEMRA [Suspect]
     Indication: RHEUMATOID ARTHRITIS
     Route: 041
     Dates: start: 20100313, end: 20100313
  2. ACTEMRA [Suspect]
     Route: 041
     Dates: start: 20100407, end: 20100407
  3. ACTEMRA [Suspect]
     Route: 041
     Dates: start: 20100508, end: 20100508
  4. ACTEMRA [Suspect]
     Route: 041
     Dates: start: 20100602, end: 20100602
  5. ACTEMRA [Suspect]
     Route: 041
     Dates: start: 20100703, end: 20100703
  6. ACTEMRA [Suspect]
     Route: 041
     Dates: start: 20100804, end: 20100804
  7. ACTEMRA [Suspect]
     Route: 041
     Dates: start: 20100901, end: 20100901
  8. CRESTOR [Suspect]
     Indication: DYSLIPIDAEMIA
     Route: 048
     Dates: start: 20081112, end: 20100323
  9. CRESTOR [Suspect]
     Route: 048
     Dates: start: 20100324, end: 20100519
  10. PREDNISOLONE [Concomitant]
     Route: 048
  11. SELBEX [Concomitant]
     Dosage: FORM: PEORAL AGENT.
     Route: 048
     Dates: start: 20081108
  12. LOXONIN [Concomitant]
     Dosage: FORM: PEORAL AGENT.
     Route: 048
  13. CONIEL [Concomitant]
     Route: 048
     Dates: start: 20081105
  14. ZYRTEC [Concomitant]
     Dosage: FORM: PEORAL AGENT.
     Route: 048
     Dates: start: 20070929
  15. ACTONEL [Concomitant]
     Route: 048
     Dates: start: 20090415
  16. URSO 250 [Concomitant]
     Dosage: FORM: PEORAL AGENT.
     Route: 048
     Dates: start: 20080416

REACTIONS (2)
  - EPILEPSY [None]
  - HEPATIC FUNCTION ABNORMAL [None]
